FAERS Safety Report 8776303 (Version 2)
Quarter: 2012Q4

REPORT INFORMATION
  Report Type: 
  Country: JP (occurrence: JP)
  Receive Date: 20120910
  Receipt Date: 20120928
  Transmission Date: 20130627
  Serious: Yes (Life-Threatening, Hospitalization, Other)
  Sender: FDA-Public Use
  Company Number: JP-B.I. PHARMACEUTICALS,INC./RIDGEFIELD-2012-BP-21506NB

PATIENT
  Age: 78 Year
  Sex: Female
  Weight: 51 kg

DRUGS (12)
  1. PRADAXA [Suspect]
     Indication: ATRIAL FIBRILLATION
     Dosage: 220 mg
     Route: 048
     Dates: start: 20120418, end: 20120821
  2. PRADAXA [Suspect]
     Dosage: 220 mg
     Route: 048
     Dates: start: 20120901
  3. ARICEPT D [Concomitant]
     Indication: DEMENTIA
     Dosage: 10 mg
     Route: 048
     Dates: start: 20110819
  4. ARICEPT D [Concomitant]
     Dosage: NR
     Route: 065
  5. OLMETEC [Concomitant]
     Indication: HYPERTENSION
     Dosage: 20 mg
     Route: 048
     Dates: start: 201007
  6. MAINTATE [Concomitant]
     Indication: HYPERTENSION
     Dosage: 0.625 mg
     Route: 048
     Dates: start: 20120418
  7. LYRICA [Concomitant]
     Indication: HYPOAESTHESIA
     Dosage: 300 mg
     Route: 048
     Dates: start: 20101110
  8. BIO-THREE [Concomitant]
     Indication: HYPOAESTHESIA
     Route: 048
     Dates: start: 201007
  9. TETRAMIDE [Concomitant]
     Indication: HYPOAESTHESIA
     Dosage: 10 mg
     Route: 048
     Dates: start: 20101110
  10. ATORVASTATIN [Concomitant]
     Indication: HYPERLIPIDAEMIA
     Dosage: 10 mg
     Route: 048
     Dates: start: 20120418
  11. MAGMITT [Concomitant]
     Indication: CONSTIPATION
     Dosage: 660 mg
     Route: 048
     Dates: start: 201007
  12. LENDORMIN D [Concomitant]
     Indication: INSOMNIA
     Dosage: 0.25 mg
     Route: 048
     Dates: start: 201007

REACTIONS (6)
  - Haemorrhagic diathesis [Recovered/Resolved]
  - Decreased appetite [Not Recovered/Not Resolved]
  - Nausea [Not Recovered/Not Resolved]
  - Haematochezia [Not Recovered/Not Resolved]
  - Renal failure acute [Unknown]
  - Dehydration [Unknown]
